FAERS Safety Report 8431527-3 (Version None)
Quarter: 2012Q2

REPORT INFORMATION
  Report Type: 
  Country: None (occurrence: None)
  Receive Date: 20120607
  Receipt Date: 20120607
  Transmission Date: 20120825
  Serious: No
  Sender: FDA-Public Use
  Company Number: None

PATIENT
  Sex: Female
  Weight: 56.6996 kg

DRUGS (2)
  1. CIPROFLOXACIN HYDROCHLORIDE [Suspect]
     Indication: URINARY TRACT INFECTION
     Dosage: IV IN HOSPITAL ? 3 DAYS 500 MG 4 DAYS TWICE DAILY
     Route: 042
     Dates: start: 20120208, end: 20120212
  2. CIPROFLOXACIN HYDROCHLORIDE [Suspect]
     Indication: NEPHROLITHIASIS
     Dosage: IV IN HOSPITAL ? 3 DAYS 500 MG 4 DAYS TWICE DAILY
     Route: 042
     Dates: start: 20120208, end: 20120212

REACTIONS (3)
  - ARTHRALGIA [None]
  - JOINT SWELLING [None]
  - PAIN [None]
